APPROVED DRUG PRODUCT: LAMIVUDINE AND ZIDOVUDINE
Active Ingredient: LAMIVUDINE; ZIDOVUDINE
Strength: 150MG;300MG
Dosage Form/Route: TABLET;ORAL
Application: A079079 | Product #001
Applicant: PHARMOBEDIENT CONSULTING LLC
Approved: Aug 12, 2019 | RLD: No | RS: No | Type: DISCN